FAERS Safety Report 5085449-9 (Version None)
Quarter: 2006Q3

REPORT INFORMATION
  Report Type: 
  Country: None (occurrence: None)
  Receive Date: 20060816
  Receipt Date: 20060814
  Transmission Date: 20061208
  Serious: Yes (Death)
  Sender: FDA-Public Use
  Company Number: 2006S1000162

PATIENT
  Age: 2 Day
  Sex: Male

DRUGS (10)
  1. INOMAX [Suspect]
     Indication: LUNG DISORDER
     Dosage: 5 PPM; CONT, INH
     Route: 055
     Dates: start: 20060810, end: 20060812
  2. INOMAX [Suspect]
     Indication: PROPHYLAXIS
     Dosage: 5 PPM; CONT, INH
     Route: 055
     Dates: start: 20060810, end: 20060812
  3. AMPICILLIN [Concomitant]
  4. GENTAMICIN [Concomitant]
  5. IBUPROFEN [Concomitant]
  6. FENTANYL [Concomitant]
  7. DOPAMINE HCL [Concomitant]
  8. DOBUTAMINE (DOBUTAMINE) [Concomitant]
  9. SODIUM BICARBONATE IN PLASTIC CONTAINER [Concomitant]
  10. INOMAX [Concomitant]

REACTIONS (5)
  - NEONATAL DISORDER [None]
  - PATENT DUCTUS ARTERIOSUS [None]
  - PNEUMOTHORAX [None]
  - PULMONARY HYPERTENSION [None]
  - THERAPY NON-RESPONDER [None]
